FAERS Safety Report 10362397 (Version 1)
Quarter: 2014Q3

REPORT INFORMATION
  Report Type: Spontaneous
  Country: US (occurrence: None)
  Receive Date: 20140804
  Receipt Date: 20140804
  Transmission Date: 20150326
  Serious: No
  Sender: FDA-Public Use
  Company Number: None

PATIENT
  Age: 87 Year
  Sex: Female

DRUGS (1)
  1. STIVARGA [Suspect]
     Active Substance: REGORAFENIB
     Indication: GASTROINTESTINAL STROMAL TUMOUR
     Route: 048
     Dates: start: 20140708, end: 20140720

REACTIONS (5)
  - Abasia [None]
  - Erythema [None]
  - Feeling hot [None]
  - Therapy cessation [None]
  - Pain in extremity [None]

NARRATIVE: CASE EVENT DATE: 20140720
